FAERS Safety Report 21266404 (Version 3)
Quarter: 2022Q4

REPORT INFORMATION
  Report Type: Report from Study
  Country: US (occurrence: US)
  Receive Date: 20220829
  Receipt Date: 20221225
  Transmission Date: 20230113
  Serious: Yes (Hospitalization)
  Sender: FDA-Public Use
  Company Number: US-ABBVIE-22K-163-4519551-00

PATIENT
  Sex: Male
  Weight: 112 kg

DRUGS (17)
  1. VENCLEXTA [Suspect]
     Active Substance: VENETOCLAX
     Indication: Chronic lymphocytic leukaemia
     Route: 048
     Dates: start: 202204
  2. MOBIC [Concomitant]
     Active Substance: MELOXICAM
     Indication: Product used for unknown indication
     Route: 048
  3. NEURONTIN [Concomitant]
     Active Substance: GABAPENTIN
     Indication: Insomnia
     Dosage: FREQUENCY TEXT: 1 CAPSULE BY MOUTH NIGHTLY
     Route: 048
  4. PHENERGAN [Concomitant]
     Active Substance: PROMETHAZINE HYDROCHLORIDE
     Indication: Nausea
     Dosage: 12.5 MG TABLET?FREQUENCY TEXT: 1 TABLET BY MOUTH EVERY 6 HOURS
     Route: 048
  5. ZYLOPRIM [Concomitant]
     Active Substance: ALLOPURINOL
     Indication: Product used for unknown indication
     Route: 048
  6. GLUCOPHAGE [Concomitant]
     Active Substance: METFORMIN HYDROCHLORIDE
     Indication: Product used for unknown indication
     Dosage: FREQUENCY TEXT: 1 TABLET 2 TIMES DAILY WITH MEALS
     Route: 048
  7. COMPAZINE [Concomitant]
     Active Substance: PROCHLORPERAZINE MALEATE
     Indication: Product used for unknown indication
     Route: 048
  8. ASPIRIN [Concomitant]
     Active Substance: ASPIRIN
     Indication: Product used for unknown indication
     Dosage: 81 MG EC TABLET?FORM STRENGTH: 81MG
     Route: 048
  9. LANTUS [Concomitant]
     Active Substance: INSULIN GLARGINE
     Indication: Product used for unknown indication
     Dosage: 100 UNIT/ML INJECTION
     Route: 065
  10. MONODOX [Concomitant]
     Active Substance: DOXYCYCLINE
     Indication: Product used for unknown indication
     Dosage: FREQUENCY TEXT: EVERY 12 HOURS FOR 5 DAYS
     Route: 048
  11. ZESTRIL [Concomitant]
     Active Substance: LISINOPRIL
     Indication: Product used for unknown indication
     Route: 048
  12. ZOFRAN [Concomitant]
     Active Substance: ONDANSETRON HYDROCHLORIDE
     Indication: Nausea
     Dosage: 4 MG DISINTEGRATING TABLET?FORM STRENGTH: 4MG?FREQUENCY TEXT: 1 TABLET BY MOUTH EVERY 8 HOURS
     Route: 048
  13. NORCO [Concomitant]
     Active Substance: ACETAMINOPHEN\HYDROCODONE BITARTRATE
     Indication: Pain management
     Dosage: 5-325 MG PER TABLET?FREQUENCY TEXT: 1 TABLET BY MOUTH EVERY 6 HOURS
     Route: 048
  14. MIRABEGRON [Concomitant]
     Active Substance: MIRABEGRON
     Indication: Product used for unknown indication
     Route: 048
  15. ZOCOR [Concomitant]
     Active Substance: SIMVASTATIN
     Indication: Product used for unknown indication
     Dosage: FORM STRENGTH: 40MG?FREQUENCY TEXT: 1 TABLET BY MOUTH NIGHTLY
     Route: 048
  16. LASIX [Concomitant]
     Active Substance: FUROSEMIDE
     Indication: Product used for unknown indication
     Route: 048
  17. HUMALOG [Concomitant]
     Active Substance: INSULIN LISPRO
     Indication: Product used for unknown indication
     Dosage: BLOOD SUGAR: FOR 0-150: 35 UNITS SUBCU QID; 151- 200: 37 UNITS SUBCU; 201- 250: 39 UNITS; 251-300...
     Route: 058

REACTIONS (21)
  - Hyperkalaemia [Recovered/Resolved]
  - Mental status changes [Unknown]
  - Renal failure [Recovered/Resolved]
  - Acidosis hyperchloraemic [Recovered/Resolved]
  - Thrombocytopenia [Recovering/Resolving]
  - Hyperlipidaemia [Unknown]
  - Hypertension [Unknown]
  - Hyponatraemia [Unknown]
  - Acute kidney injury [Recovered/Resolved]
  - Orthostatic hypotension [Unknown]
  - Metabolic encephalopathy [Recovered/Resolved]
  - Liver function test increased [Unknown]
  - Sepsis [Unknown]
  - Blood bilirubin increased [Unknown]
  - Hepatic steatosis [Unknown]
  - Atelectasis [Unknown]
  - Hepatomegaly [Unknown]
  - Pleural effusion [Unknown]
  - Lymphadenopathy [Unknown]
  - Hiatus hernia [Unknown]
  - Cardiomegaly [Unknown]
